FAERS Safety Report 5999123-5 (Version None)
Quarter: 2008Q4

REPORT INFORMATION
  Report Type: 
  Country: None (occurrence: None)
  Receive Date: 20081215
  Receipt Date: 20070314
  Transmission Date: 20090506
  Serious: Yes (Hospitalization)
  Sender: FDA-Public Use
  Company Number: DE-PFIZER INC-2007049296

PATIENT

DRUGS (10)
  1. IRINOTECAN HCL [Suspect]
     Indication: COLORECTAL CANCER METASTATIC
     Dosage: 2 EVERY 1 WEEKS
     Route: 042
     Dates: start: 20070122
  2. IRINOTECAN HCL [Suspect]
     Indication: METASTASES TO LIVER
  3. CETUXIMAB [Suspect]
     Indication: COLORECTAL CANCER METASTATIC
     Dosage: WEEKLY
     Route: 042
     Dates: start: 20070122
  4. CETUXIMAB [Suspect]
     Indication: METASTASES TO LIVER
  5. FLUOROURACIL [Suspect]
     Indication: COLORECTAL CANCER METASTATIC
     Dosage: 2 EVERY 1 WEEKS
     Route: 042
     Dates: start: 20070122
  6. FLUOROURACIL [Suspect]
     Indication: METASTASES TO LIVER
  7. FOLINIC ACID [Suspect]
     Indication: COLORECTAL CANCER METASTATIC
     Dosage: 2 EVERY 1 WEEKS
     Route: 042
     Dates: start: 20070122
  8. FOLINIC ACID [Suspect]
     Indication: METASTASES TO LIVER
  9. STAPHYLEX [Concomitant]
     Route: 048
     Dates: start: 20070212, end: 20070219
  10. NEXIUM [Concomitant]
     Route: 048
     Dates: start: 20070219

REACTIONS (2)
  - DUODENAL ULCER [None]
  - JAUNDICE [None]
